FAERS Safety Report 9858716 (Version 4)
Quarter: 2014Q3

REPORT INFORMATION
  Report Type: Spontaneous
  Country: JP (occurrence: JP)
  Receive Date: 20140131
  Receipt Date: 20140902
  Transmission Date: 20150326
  Serious: Yes (Death, Hospitalization, Other)
  Sender: FDA-Public Use
  Company Number: JP-PFIZER INC-2014006597

PATIENT
  Age: 80 Year
  Sex: Male
  Weight: 50.8 kg

DRUGS (6)
  1. AMBISOME [Suspect]
     Active Substance: AMPHOTERICIN B
     Indication: FUNGAL INFECTION
     Dosage: 50 MG, 1X/DAY
     Route: 042
     Dates: start: 20131025, end: 20131111
  2. AMBISOME [Suspect]
     Active Substance: AMPHOTERICIN B
     Dosage: 250 MG, 1X/DAY
     Route: 042
     Dates: start: 20131112, end: 20131228
  3. PRODIF [Suspect]
     Active Substance: FOSFLUCONAZOLE
     Indication: MENINGITIS CRYPTOCOCCAL
     Dosage: 1009 MG, DAILY
     Route: 042
     Dates: start: 20131228, end: 20140102
  4. PRODIF [Suspect]
     Active Substance: FOSFLUCONAZOLE
     Dosage: 504.5 MG, 1X/DAY
     Route: 042
     Dates: start: 20140103, end: 20140103
  5. ANCOTIL [Suspect]
     Active Substance: FLUCYTOSINE
     Indication: FUNGAL INFECTION
     Dosage: 1500 MG, 3X/DAY
     Route: 048
     Dates: start: 20131115, end: 20140102
  6. FLUCONAZOLE. [Concomitant]
     Active Substance: FLUCONAZOLE
     Indication: FUNGAL INFECTION
     Dosage: 400 MG, 1X/DAY
     Route: 042
     Dates: start: 20131031, end: 20131115

REACTIONS (3)
  - Hepatic failure [Fatal]
  - Cholestasis [Fatal]
  - Overdose [Fatal]

NARRATIVE: CASE EVENT DATE: 20131216
